FAERS Safety Report 12547393 (Version 3)
Quarter: 2016Q3

REPORT INFORMATION
  Report Type: Spontaneous
  Country: AT (occurrence: AT)
  Receive Date: 20160711
  Receipt Date: 20160819
  Transmission Date: 20161109
  Serious: Yes (Death, Hospitalization)
  Sender: FDA-Public Use
  Company Number: AT-ABBVIE-16K-009-1671970-00

PATIENT
  Age: 74 Year
  Sex: Female

DRUGS (1)
  1. DUODOPA [Suspect]
     Active Substance: CARBIDOPA\LEVODOPA
     Indication: PARKINSON^S DISEASE
     Dosage: 16H THERAPY: MD: 4.0ML; CR: 2.0ML/H; ED: 0.5 ML
     Route: 050
     Dates: start: 20160119

REACTIONS (3)
  - Cardiac failure acute [Fatal]
  - Hypertensive crisis [Unknown]
  - Anaemia [Unknown]

NARRATIVE: CASE EVENT DATE: 2016
